FAERS Safety Report 4388337-6 (Version None)
Quarter: 2004Q3

REPORT INFORMATION
  Report Type: 
  Country: None (occurrence: None)
  Receive Date: 20040701
  Receipt Date: 20040625
  Transmission Date: 20050211
  Serious: Yes (Hospitalization)
  Sender: FDA-Public Use
  Company Number: GB-MERCK-0406GBR00222

PATIENT
  Age: 75 Year
  Sex: Male
  Weight: 70 kg

DRUGS (6)
  1. ALBUTEROL [Concomitant]
     Route: 055
  2. ASPIRIN [Concomitant]
     Route: 048
     Dates: start: 20030801
  3. FLUTICASONE PROPIONATE [Concomitant]
     Route: 055
  4. FORMOTEROL FUMARATE [Concomitant]
     Indication: ASTHMA
     Route: 055
  5. ISOSORBIDE MONONITRATE [Concomitant]
     Indication: PAIN
     Route: 048
     Dates: start: 20030801
  6. ZOCOR [Suspect]
     Indication: BLOOD CHOLESTEROL INCREASED
     Route: 048
     Dates: start: 20040523, end: 20040525

REACTIONS (1)
  - DYSURIA [None]
